FAERS Safety Report 11444942 (Version 5)
Quarter: 2018Q1

REPORT INFORMATION
  Report Type: Report from Study
  Country: BR (occurrence: BR)
  Receive Date: 20150902
  Receipt Date: 20180121
  Transmission Date: 20180508
  Serious: Yes (Other)
  Sender: FDA-Public Use
  Company Number: PHHY2015BR104696

PATIENT
  Sex: Female
  Weight: 50 kg

DRUGS (3)
  1. HUMIRA [Concomitant]
     Active Substance: ADALIMUMAB
     Indication: RHEUMATOID ARTHRITIS
     Dosage: EVERY 15 DAYS
     Route: 065
  2. ACLASTA [Suspect]
     Active Substance: ZOLEDRONIC ACID
     Dosage: 5 MG, Q12MO
     Route: 042
     Dates: start: 201612
  3. ACLASTA [Suspect]
     Active Substance: ZOLEDRONIC ACID
     Indication: OSTEOPOROSIS
     Dosage: 1 DF (5MG/100ML), Q12MO
     Route: 042
     Dates: start: 20140826

REACTIONS (14)
  - Back pain [Recovered/Resolved]
  - Hypokinesia [Unknown]
  - Muscular weakness [Unknown]
  - Spinal deformity [Not Recovered/Not Resolved]
  - Body height decreased [Not Recovered/Not Resolved]
  - Pneumonia [Recovering/Resolving]
  - Hypoacusis [Not Recovered/Not Resolved]
  - Muscle atrophy [Unknown]
  - Hypertension [Unknown]
  - Cardiac disorder [Not Recovered/Not Resolved]
  - Bone disorder [Not Recovered/Not Resolved]
  - Spinal fracture [Recovered/Resolved]
  - Spinal fracture [Unknown]
  - Thyroid disorder [Unknown]
